FAERS Safety Report 9465657 (Version 1)
Quarter: 2013Q3

REPORT INFORMATION
  Report Type: Spontaneous
  Country: US (occurrence: US)
  Receive Date: 20130820
  Receipt Date: 20130820
  Transmission Date: 20140515
  Serious: No
  Sender: FDA-Public Use
  Company Number: US-US-EMD SERONO, INC.-7231129

PATIENT
  Age: 73 Year
  Sex: Male

DRUGS (7)
  1. SEROSTIM [(SOMATROPIN (RDNA ORIGIN) FOR INJECTION)] [Suspect]
     Indication: HIV WASTING SYNDROME
     Dates: start: 201307, end: 201307
  2. SEROSTIM [(SOMATROPIN (RDNA ORIGIN) FOR INJECTION)] [Suspect]
     Dates: start: 201308
  3. CELTECT [Concomitant]
     Indication: OSTEOPOROSIS
  4. LEXIVA                             /01644801/ [Concomitant]
     Indication: HIV INFECTION
  5. EPZICOM                            /01788801/ [Concomitant]
     Indication: HIV INFECTION
  6. NORVIR [Concomitant]
     Indication: HIV INFECTION
     Dates: start: 2012, end: 2013
  7. ACTONEL [Concomitant]
     Indication: OSTEOPOROSIS
     Dates: start: 2013, end: 2013

REACTIONS (2)
  - Neuropathy peripheral [Unknown]
  - Local swelling [Not Recovered/Not Resolved]
